FAERS Safety Report 4626641-4 (Version None)
Quarter: 2005Q1

REPORT INFORMATION
  Report Type: 
  Country: None (occurrence: None)
  Receive Date: 20050330
  Receipt Date: 20050317
  Transmission Date: 20050727
  Serious: Yes (Other)
  Sender: FDA-Public Use
  Company Number: HQWYE182218MAR05

PATIENT
  Sex: 0

DRUGS (1)
  1. EFFEXOR XR [Suspect]
     Dosage: 150 MG  OR 75 MG
     Dates: start: 20041218

REACTIONS (3)
  - DELUSION [None]
  - SCHIZOPHRENIA [None]
  - SUICIDAL IDEATION [None]
